FAERS Safety Report 4825838-8 (Version None)
Quarter: 2005Q4

REPORT INFORMATION
  Report Type: 
  Country: None (occurrence: None)
  Receive Date: 20051111
  Receipt Date: 20051101
  Transmission Date: 20060501
  Serious: Yes (Other)
  Sender: FDA-Public Use
  Company Number: US-JNJFOC-20050806829

PATIENT
  Sex: Female
  Weight: 38.56 kg

DRUGS (10)
  1. REMICADE [Suspect]
     Dosage: 3 VIALS
     Route: 042
  2. REMICADE [Suspect]
     Dosage: 3 VIALS
     Route: 042
  3. REMICADE [Suspect]
     Indication: RHEUMATOID ARTHRITIS
     Dosage: 3 VIALS
     Route: 042
  4. PLAQUENIL [Concomitant]
  5. DAYPRO [Concomitant]
  6. BEXTRA [Concomitant]
  7. LOTREL [Concomitant]
  8. LOTREL [Concomitant]
     Indication: HYPERTENSION
  9. VITAMINS [Concomitant]
  10. ASPIRIN [Concomitant]

REACTIONS (2)
  - CAROTID ARTERY OCCLUSION [None]
  - THERAPEUTIC RESPONSE DECREASED [None]
